FAERS Safety Report 7229297-X (Version None)
Quarter: 2011Q1

REPORT INFORMATION
  Report Type: 
  Country: None (occurrence: None)
  Receive Date: 20110117
  Receipt Date: 20110114
  Transmission Date: 20110831
  Serious: Yes (Other)
  Sender: FDA-Public Use
  Company Number: A0888858A

PATIENT
  Age: 70 Year
  Sex: Female

DRUGS (11)
  1. ZANTAC [Concomitant]
  2. PRILOSEC [Concomitant]
  3. ALLI [Suspect]
     Indication: WEIGHT LOSS DIET
     Route: 048
     Dates: start: 20100901, end: 20101018
  4. CALCIUM [Concomitant]
  5. VITAMIN A [Concomitant]
  6. VITAMIN D [Concomitant]
  7. GARLIC + PARSLEY TABLETS [Concomitant]
  8. ASCORBIC ACID [Concomitant]
  9. NIACIN [Concomitant]
  10. VITAMIN E [Concomitant]
  11. VYTORIN [Concomitant]

REACTIONS (14)
  - ABDOMINAL DISTENSION [None]
  - COLONIC POLYP [None]
  - GASTROINTESTINAL DISORDER [None]
  - RECTAL DISCHARGE [None]
  - TREATMENT NONCOMPLIANCE [None]
  - BLOOD TEST ABNORMAL [None]
  - COLONOSCOPY [None]
  - DIVERTICULITIS [None]
  - DRUG ADMINISTRATION ERROR [None]
  - OFF LABEL USE [None]
  - HAEMATOCHEZIA [None]
  - FREQUENT BOWEL MOVEMENTS [None]
  - ABDOMINAL PAIN UPPER [None]
  - COLON NEOPLASM [None]
